FAERS Safety Report 10184886 (Version 2)
Quarter: 2014Q3

REPORT INFORMATION
  Report Type: Spontaneous
  Country: JP (occurrence: JP)
  Receive Date: 20140521
  Receipt Date: 20140722
  Transmission Date: 20150326
  Serious: Yes (Death, Other)
  Sender: FDA-Public Use
  Company Number: JP-BAYER-2014-073140

PATIENT
  Age: 85 Year
  Sex: Male
  Weight: 43 kg

DRUGS (19)
  1. NEXAVAR [Suspect]
     Active Substance: SORAFENIB
     Indication: HEPATOCELLULAR CARCINOMA
     Dosage: 200 MG
     Dates: start: 20130908, end: 20130909
  2. NEXAVAR [Suspect]
     Active Substance: SORAFENIB
     Indication: HEPATOCELLULAR CARCINOMA
     Dosage: 200 MG QOD
     Dates: start: 20140307, end: 20140317
  3. SAWADOL L [Concomitant]
     Indication: HYPERTENSION
     Dosage: DAILY DOSE 40 MG
     Route: 048
     Dates: start: 20101111
  4. MYSLEE [Concomitant]
     Active Substance: ZOLPIDEM TARTRATE
     Indication: INSOMNIA
     Dosage: DAILY DOSE 10 MG
     Route: 048
     Dates: start: 20101111
  5. NEXAVAR [Suspect]
     Active Substance: SORAFENIB
     Indication: HEPATOCELLULAR CARCINOMA
     Dosage: 400 MG QOD
     Dates: start: 20130809, end: 20130825
  6. NEXAVAR [Suspect]
     Active Substance: SORAFENIB
     Indication: HEPATOCELLULAR CARCINOMA
     Dosage: 400 MG
     Dates: start: 20130910, end: 20130926
  7. FLIVAS [Concomitant]
     Active Substance: NAFTOPIDIL
     Indication: BENIGN PROSTATIC HYPERPLASIA
     Dosage: DAILY DOSE 1 DF
     Route: 048
     Dates: start: 20110314
  8. MEXITIL [Concomitant]
     Active Substance: MEXILETINE HYDROCHLORIDE
     Indication: ARRHYTHMIA
     Dosage: DAILY DOSE 3 DF
     Route: 048
     Dates: start: 20101111
  9. NEXAVAR [Suspect]
     Active Substance: SORAFENIB
     Indication: HEPATOCELLULAR CARCINOMA
     Dosage: DAILY DOSE 400 MG
     Route: 048
     Dates: start: 20130902, end: 20130902
  10. NEXAVAR [Suspect]
     Active Substance: SORAFENIB
     Indication: HEPATOCELLULAR CARCINOMA
     Dosage: 200 MG
     Dates: start: 20130927, end: 20140306
  11. SPIRONOLACTONE. [Concomitant]
     Active Substance: SPIRONOLACTONE
     Indication: HYPERTENSION
     Dosage: DAILY DOSE 25 MG
     Route: 048
     Dates: start: 20101111
  12. GLYCYRON [GLYCYRRHIZIC ACID] [Concomitant]
     Indication: HEPATIC CIRRHOSIS
     Dosage: DAILY DOSE 6 DF
     Route: 048
     Dates: start: 20101111
  13. METHYCOBAL [Concomitant]
     Active Substance: METHYLCOBALAMIN
     Dosage: DAILY DOSE 3 DF
     Route: 048
     Dates: start: 20101111
  14. THIATON [Concomitant]
     Active Substance: TIQUIZIUM BROMIDE
     Indication: GASTRITIS
     Dosage: DAILY DOSE 3 DF
     Route: 048
     Dates: start: 20101111
  15. FRANDOL [Concomitant]
     Active Substance: ISOSORBIDE DINITRATE
     Indication: ANGINA PECTORIS
     Dosage: DAILY DOSE 1 DF
     Route: 062
     Dates: start: 20121115
  16. SYMBICORT [Concomitant]
     Active Substance: BUDESONIDE\FORMOTEROL FUMARATE DIHYDRATE
     Indication: ASTHMA
     Dosage: UNK
     Route: 055
     Dates: start: 20130817
  17. PROHEPARUM [Concomitant]
     Active Substance: CHOLINE BITARTRATE\CYSTEINE\INOSITOL\MAMMAL LIVER
     Indication: HEPATIC CIRRHOSIS
     Dosage: DAILY DOSE 6 DF
     Route: 048
     Dates: start: 20101111
  18. URSO [Concomitant]
     Active Substance: URSODIOL
     Indication: HEPATIC CIRRHOSIS
     Dosage: DAILY DOSE 600 MG
     Route: 048
     Dates: start: 20101111
  19. FUROSEMIDE. [Concomitant]
     Active Substance: FUROSEMIDE
     Indication: HYPERTENSION
     Dosage: DAILY DOSE 20 MG
     Dates: start: 20101111

REACTIONS (5)
  - Decreased appetite [Fatal]
  - Decreased appetite [Recovering/Resolving]
  - Colitis ischaemic [Recovering/Resolving]
  - Weight decreased [Recovering/Resolving]
  - Death [Fatal]

NARRATIVE: CASE EVENT DATE: 20130903
